FAERS Safety Report 8021447-0 (Version None)
Quarter: 2012Q1

REPORT INFORMATION
  Report Type: 
  Country: None (occurrence: None)
  Receive Date: 20120104
  Receipt Date: 20111227
  Transmission Date: 20120608
  Serious: Yes (Hospitalization, Other)
  Sender: FDA-Public Use
  Company Number: US-BAYER-2011-046238

PATIENT
  Age: 32 Year
  Sex: Female
  Weight: 122.45 kg

DRUGS (5)
  1. PRILOSEC [Concomitant]
  2. YASMIN [Suspect]
     Dosage: UNK
     Dates: start: 20080201, end: 20081101
  3. DROSPIRENONE AND ETHINYL ESTRADIOL [Suspect]
     Dosage: UNK
     Dates: start: 20080201, end: 20081101
  4. PAXIL [Concomitant]
     Dosage: 30 MG, QD
     Route: 048
  5. YAZ [Suspect]
     Dosage: UNK
     Dates: start: 20080201, end: 20081101

REACTIONS (5)
  - DEFORMITY [None]
  - GALLBLADDER DISORDER [None]
  - PAIN [None]
  - INJURY [None]
  - CHOLECYSTITIS CHRONIC [None]
